FAERS Safety Report 10285751 (Version 4)
Quarter: 2015Q4

REPORT INFORMATION
  Report Type: Spontaneous
  Country: CN (occurrence: CN)
  Receive Date: 20140709
  Receipt Date: 20151118
  Transmission Date: 20160304
  Serious: Yes (Other)
  Sender: FDA-Public Use
  Company Number: CN-BRISTOL-MYERS SQUIBB COMPANY-21165303

PATIENT
  Age: 62 Year
  Sex: Female

DRUGS (4)
  1. ERBITUX [Suspect]
     Active Substance: CETUXIMAB
     Dosage: UNK MG, UNK
     Route: 042
     Dates: start: 201509
  2. ERBITUX [Suspect]
     Active Substance: CETUXIMAB
     Indication: COLORECTAL CANCER
     Dosage: IV GLUCOSE TOLERANCE TEST.  2ND DOSE:19JUN2014, 800MG.  26JUN14
     Route: 042
     Dates: start: 20140612, end: 201407
  3. ERBITUX [Suspect]
     Active Substance: CETUXIMAB
     Dosage: 800 MG, UNK
     Route: 042
     Dates: start: 20140619
  4. OXALIPLATIN. [Concomitant]
     Active Substance: OXALIPLATIN
     Indication: COLORECTAL CANCER
     Route: 065

REACTIONS (1)
  - Cerebral ischaemia [Recovered/Resolved]

NARRATIVE: CASE EVENT DATE: 20140620
